FAERS Safety Report 21541289 (Version 2)
Quarter: 2022Q4

REPORT INFORMATION
  Report Type: Spontaneous
  Country: US (occurrence: US)
  Receive Date: 20221102
  Receipt Date: 20221214
  Transmission Date: 20230112
  Serious: No
  Sender: FDA-Public Use
  Company Number: US-BAYER-2022A147705

PATIENT
  Age: 43 Year
  Sex: Female

DRUGS (1)
  1. MIRENA [Suspect]
     Active Substance: LEVONORGESTREL
     Indication: Heavy menstrual bleeding
     Dosage: 20?G/DAY
     Route: 015
     Dates: start: 20161209, end: 20210625

REACTIONS (5)
  - Hordeolum [Not Recovered/Not Resolved]
  - Rash [None]
  - Urticaria [None]
  - Swelling face [None]
  - COVID-19 [None]

NARRATIVE: CASE EVENT DATE: 20170801
